FAERS Safety Report 6007879-0 (Version None)
Quarter: 2008Q4

REPORT INFORMATION
  Report Type: 
  Country: None (occurrence: None)
  Receive Date: 20081217
  Receipt Date: 20080724
  Transmission Date: 20090506
  Serious: No
  Sender: FDA-Public Use
  Company Number: US-ASTRAZENECA-2008UW13659

PATIENT
  Age: 70 Year
  Sex: Female
  Weight: 81.6 kg

DRUGS (7)
  1. CRESTOR [Suspect]
     Indication: BLOOD CHOLESTEROL INCREASED
     Dosage: 10 MG
     Route: 048
     Dates: start: 20050701
  2. LEVOTHYROXINE SODIUM [Concomitant]
     Route: 048
  3. LISINOPRIL [Concomitant]
     Route: 048
  4. ATENOLOL [Concomitant]
     Route: 048
  5. NEXIUM [Concomitant]
     Route: 048
  6. ASPIRIN [Concomitant]
     Dosage: 325 MG
     Route: 048
  7. MULTI-VITAMIN [Concomitant]
     Route: 048

REACTIONS (1)
  - BACK PAIN [None]
